FAERS Safety Report 8987931 (Version 1)
Quarter: 2012Q4

REPORT INFORMATION
  Report Type: 
  Country: BR (occurrence: BR)
  Receive Date: 20121227
  Receipt Date: 20121227
  Transmission Date: 20130627
  Serious: Yes (Hospitalization)
  Sender: FDA-Public Use
  Company Number: BR-ELI_LILLY_AND_COMPANY-BR201212005380

PATIENT
  Age: 64 Year
  Sex: Female
  Weight: 78 kg

DRUGS (6)
  1. CYMBALTA [Suspect]
     Indication: EMOTIONAL DISORDER
     Dosage: 60 mg, qd
     Route: 048
     Dates: start: 201112
  2. CYMBALTA [Suspect]
     Dosage: 60 mg, qd
     Route: 048
  3. CYMBALTA [Suspect]
     Dosage: 30 mg, other
     Route: 065
     Dates: start: 20121217
  4. AMOXICILINA [Concomitant]
     Dosage: 500 mg, tid
     Route: 065
  5. TRAZODONA [Concomitant]
     Dosage: 150 mg, each evening
     Route: 065
  6. PURAN T4 [Concomitant]
     Indication: THYROID DISORDER
     Dosage: 50 mg, each morning
     Route: 065

REACTIONS (4)
  - Breast cancer [Unknown]
  - Pain [Not Recovered/Not Resolved]
  - Dizziness [Not Recovered/Not Resolved]
  - Off label use [Unknown]
